FAERS Safety Report 7279572-8 (Version None)
Quarter: 2011Q1

REPORT INFORMATION
  Report Type: 
  Country: None (occurrence: None)
  Receive Date: 20110208
  Receipt Date: 20110128
  Transmission Date: 20110831
  Serious: No
  Sender: FDA-Public Use
  Company Number: US-BIOGENIDEC-2011BI004292

PATIENT
  Age: 45 Year
  Sex: Female

DRUGS (2)
  1. TYSABRI [Suspect]
     Indication: MULTIPLE SCLEROSIS
     Route: 042
     Dates: start: 20070917, end: 20101029
  2. TYSABRI [Suspect]
     Route: 042
     Dates: start: 20050117, end: 20050117

REACTIONS (2)
  - SOMNOLENCE [None]
  - BONE PAIN [None]
